FAERS Safety Report 16805941 (Version 1)
Quarter: 2019Q3

REPORT INFORMATION
  Report Type: Spontaneous
  Country: US (occurrence: US)
  Receive Date: 20190913
  Receipt Date: 20190913
  Transmission Date: 20191005
  Serious: No
  Sender: FDA-Public Use
  Company Number: PHEH2019US036868

PATIENT
  Sex: Female

DRUGS (3)
  1. LATISSE [Concomitant]
     Active Substance: BIMATOPROST
     Indication: PRODUCT USED FOR UNKNOWN INDICATION
     Dosage: UNK
     Route: 065
  2. BIMATOPROST. [Suspect]
     Active Substance: BIMATOPROST
     Indication: PRODUCT USED FOR UNKNOWN INDICATION
     Dosage: 0.03 %, QOD
     Route: 065
  3. BIMATOPROST. [Suspect]
     Active Substance: BIMATOPROST

REACTIONS (2)
  - Madarosis [Unknown]
  - Eye pruritus [Unknown]
